FAERS Safety Report 16443135 (Version 1)
Quarter: 2019Q2

REPORT INFORMATION
  Report Type: Spontaneous
  Country: US (occurrence: US)
  Receive Date: 20190617
  Receipt Date: 20190617
  Transmission Date: 20190711
  Serious: No
  Sender: FDA-Public Use
  Company Number: US-GLAXOSMITHKLINE-US2019105700

PATIENT
  Sex: Female

DRUGS (3)
  1. FLONASE ALLERGY RELIEF [Suspect]
     Active Substance: FLUTICASONE PROPIONATE
     Indication: NASAL CONGESTION
     Dosage: UNK, QD (AT NIGHT FOR 2MONTHS)
     Route: 045
     Dates: start: 20190402
  2. NASAL SPRAY [Suspect]
     Active Substance: UNSPECIFIED INGREDIENT
     Indication: NASAL CONGESTION
     Dosage: UNK
  3. NASAL SPRAY [Suspect]
     Active Substance: UNSPECIFIED INGREDIENT
     Indication: MULTIPLE ALLERGIES

REACTIONS (7)
  - Therapeutic product effect variable [Unknown]
  - Ill-defined disorder [Unknown]
  - Drug interaction [Unknown]
  - Muscle spasms [Unknown]
  - Hypoaesthesia [Unknown]
  - Incorrect product administration duration [Unknown]
  - Adverse drug reaction [Unknown]
